FAERS Safety Report 19967935 (Version 1)
Quarter: 2021Q4

REPORT INFORMATION
  Report Type: Spontaneous
  Country: CA (occurrence: CA)
  Receive Date: 20211019
  Receipt Date: 20211019
  Transmission Date: 20220303
  Serious: Yes (Hospitalization)
  Sender: FDA-Public Use
  Company Number: CA-STRIDES ARCOLAB LIMITED-2021SP028755

PATIENT
  Age: 29 Year
  Sex: Male

DRUGS (9)
  1. AMANTADINE HYDROCHLORIDE [Suspect]
     Active Substance: AMANTADINE HYDROCHLORIDE
     Indication: Behavioural therapy
     Dosage: 100 MILLIGRAM
     Route: 065
  2. METHYLPHENIDATE [Suspect]
     Active Substance: METHYLPHENIDATE
     Indication: Behavioural therapy
     Dosage: 5 MILLIGRAM, BID
     Route: 065
  3. LEVETIRACETAM [Concomitant]
     Active Substance: LEVETIRACETAM
     Indication: Seizure prophylaxis
     Dosage: 1500 MILLIGRAM, BID
     Route: 065
  4. LEVETIRACETAM [Concomitant]
     Active Substance: LEVETIRACETAM
     Dosage: UNK, TAPERED OFF
     Route: 065
  5. LACOSAMIDE [Concomitant]
     Active Substance: LACOSAMIDE
     Indication: Seizure prophylaxis
     Dosage: 25 MILLIGRAM, BID
     Route: 065
  6. LACOSAMIDE [Concomitant]
     Active Substance: LACOSAMIDE
     Dosage: UNK, TAPERING DOSE
     Route: 065
  7. LACOSAMIDE [Concomitant]
     Active Substance: LACOSAMIDE
     Dosage: UNK, GRADUALLY TAPERED TO DISCONTINUATION
     Route: 065
  8. VENLAFAXINE [Concomitant]
     Active Substance: VENLAFAXINE HYDROCHLORIDE
     Indication: Antidepressant therapy
     Dosage: UNK
     Route: 065
  9. VENLAFAXINE [Concomitant]
     Active Substance: VENLAFAXINE HYDROCHLORIDE
     Dosage: UNK, TAPERED OFF
     Route: 065

REACTIONS (1)
  - Petit mal epilepsy [Recovered/Resolved]
